FAERS Safety Report 6080065-4 (Version None)
Quarter: 2009Q1

REPORT INFORMATION
  Report Type: 
  Country: None (occurrence: None)
  Receive Date: 20090217
  Receipt Date: 20090202
  Transmission Date: 20090719
  Serious: Yes (Hospitalization)
  Sender: FDA-Public Use
  Company Number: JP-ELI_LILLY_AND_COMPANY-JP200902002587

PATIENT
  Sex: Male
  Weight: 58 kg

DRUGS (12)
  1. F1J-JE-HMFX PH III JP DULO DPNP P-III DB [Suspect]
     Indication: DIABETIC NEUROPATHY
     Dates: start: 20081023
  2. F1J-JE-HMFX PH III JP DULO DPNP P-III DB [Suspect]
     Dates: start: 20081030
  3. F1J-JE-HMFX PH III JP DULO DPNP P-III DB [Suspect]
     Dates: start: 20081106
  4. F1J-JE-HMFX PH III JP DULO DPNP P-III DB [Suspect]
     Dates: start: 20090115
  5. OLMETEC [Concomitant]
     Indication: HYPERTENSION
     Dosage: 40 MG, DAILY (1/D)
     Route: 048
  6. TOWAMIN [Concomitant]
     Indication: HYPERTENSION
     Dosage: 25 MG, DAILY (1/D)
     Route: 048
  7. NATRIX [Concomitant]
     Indication: HYPERTENSION
     Dosage: 2 MG, DAILY (1/D)
     Route: 048
  8. CARDENALIN [Concomitant]
     Indication: HYPERTENSION
     Dosage: 2 MG, DAILY (1/D)
     Route: 048
  9. ACTOS [Concomitant]
     Indication: TYPE 2 DIABETES MELLITUS
     Dosage: 15 MG, DAILY (1/D)
     Route: 048
     Dates: start: 20080528
  10. BEZATATE [Concomitant]
     Indication: HYPERLIPIDAEMIA
     Dosage: 400 MG, DAILY (1/D)
     Route: 048
  11. MITIGLINIDE [Concomitant]
     Indication: TYPE 2 DIABETES MELLITUS
     Dosage: 15 MG, DAILY (1/D)
     Route: 048
  12. BENZBROMARONE [Concomitant]
     Indication: HYPERURICAEMIA
     Dosage: 50 MG, DAILY (1/D)
     Route: 048

REACTIONS (2)
  - HEPATIC FUNCTION ABNORMAL [None]
  - PNEUMONIA [None]
